FAERS Safety Report 9169288 (Version 5)
Quarter: 2014Q2

REPORT INFORMATION
  Report Type: Spontaneous
  Country: US (occurrence: US)
  Receive Date: 20130318
  Receipt Date: 20140519
  Transmission Date: 20141212
  Serious: Yes (Hospitalization, Other)
  Sender: FDA-Public Use
  Company Number: US-MERCK-1303USA007535

PATIENT
  Sex: Female
  Weight: 72.56 kg

DRUGS (2)
  1. FOSAMAX [Suspect]
     Indication: OSTEOPOROSIS
     Dosage: 70 MG, UNK
     Route: 048
     Dates: end: 2012
  2. ALENDRONATE SODIUM [Suspect]
     Indication: OSTEOPOROSIS
     Dosage: 70 MG, UNK
     Dates: start: 2006, end: 2012

REACTIONS (17)
  - Femur fracture [Unknown]
  - Intramedullary rod insertion [Unknown]
  - Intramedullary rod insertion [Unknown]
  - Femur fracture [Unknown]
  - Peptic ulcer [Unknown]
  - Low turnover osteopathy [Unknown]
  - Inflammatory bowel disease [Unknown]
  - Arthritis [Unknown]
  - Peripheral swelling [Unknown]
  - Venous thrombosis limb [Unknown]
  - Type 2 diabetes mellitus [Unknown]
  - Hypothyroidism [Unknown]
  - Osteopenia [Unknown]
  - Glaucoma [Unknown]
  - Cataract [Unknown]
  - Back pain [Unknown]
  - Pain in extremity [Unknown]
